FAERS Safety Report 10012185 (Version 1)
Quarter: 2014Q1

REPORT INFORMATION
  Report Type: Report from Study
  Country: US (occurrence: US)
  Receive Date: 20140314
  Receipt Date: 20140314
  Transmission Date: 20141002
  Serious: Yes (Hospitalization)
  Sender: FDA-Public Use
  Company Number: PHHY2014US028314

PATIENT
  Age: 49 Year
  Sex: Male

DRUGS (10)
  1. CALCIUM FOLINATE [Suspect]
     Indication: COLON CANCER
     Dosage: 200 MG/M2, UNK
     Route: 042
     Dates: start: 20140109, end: 20140109
  2. CALCIUM FOLINATE [Suspect]
     Dosage: 200 MG/M2, UNK
     Route: 042
     Dates: start: 20140129
  3. IRINOTECAN [Suspect]
     Indication: COLON CANCER
     Dosage: 120 MG/M2, 1 IN 2 WK
     Route: 042
     Dates: start: 20140109
  4. IRINOTECAN [Suspect]
     Dosage: 120 MG/M2, 1 IN 2 WK
     Route: 042
     Dates: start: 20140129
  5. OXALIPLATIN [Suspect]
     Indication: COLON CANCER
     Dosage: 85 MG/M2, UNK
     Route: 042
     Dates: start: 20140109
  6. OXALIPLATIN [Suspect]
     Dosage: 65 MG/M2, 1 IN 2 WK
     Route: 042
     Dates: start: 20140129
  7. 5-FLUOROURACIL [Suspect]
     Indication: COLON CANCER
     Dosage: 3200 MG/M2, 1 IN 2 WK
     Route: 042
     Dates: start: 20140109
  8. 5-FLUOROURACIL [Suspect]
     Dosage: 2400 MG/M2, 1 IN 2 WK
     Route: 042
     Dates: start: 20140129
  9. BEVACIZUMAB [Suspect]
     Indication: COLON CANCER
     Dosage: 5 MG/KG, 1 IN 2 WK
     Route: 042
     Dates: start: 20140109, end: 20140109
  10. BEVACIZUMAB [Suspect]
     Dosage: 5 MG/KG, 1 IN 2 WK
     Route: 042
     Dates: start: 20140129

REACTIONS (7)
  - Rectal obstruction [Unknown]
  - Colitis [Unknown]
  - Constipation [Unknown]
  - Abdominal pain [Unknown]
  - Febrile neutropenia [Recovered/Resolved]
  - White blood cell count decreased [Unknown]
  - Neutrophil count decreased [Recovered/Resolved]
